FAERS Safety Report 25932397 (Version 2)
Quarter: 2025Q4

REPORT INFORMATION
  Report Type: Spontaneous
  Country: IN (occurrence: IN)
  Receive Date: 20251016
  Receipt Date: 20251028
  Transmission Date: 20260117
  Serious: Yes (Hospitalization, Other)
  Sender: ALKEM
  Company Number: None

PATIENT
  Age: 21 Year
  Sex: Female

DRUGS (6)
  1. FOSFOMYCIN [Suspect]
     Active Substance: FOSFOMYCIN
     Indication: Pyelonephritis acute
     Dosage: UNK (INJECTABLE FOSFOMYCIN)
     Route: 048
  2. FOSFOMYCIN [Suspect]
     Active Substance: FOSFOMYCIN
     Dosage: 4 GRAM (LOADING DOSE) INJECTABLE FOSFOMYCIN
     Route: 065
  3. FOSFOMYCIN [Suspect]
     Active Substance: FOSFOMYCIN
     Dosage: 4 GRAM, QOD (INJECTABLE FOSFOMYCIN)
     Route: 065
  4. AMLODIPINE [Concomitant]
     Active Substance: AMLODIPINE BESYLATE
     Indication: Product used for unknown indication
     Dosage: UNK
     Route: 065
  5. FUROSEMIDE [Concomitant]
     Active Substance: FUROSEMIDE
     Indication: Product used for unknown indication
     Dosage: UNK
     Route: 065
  6. METOPROLOL [Concomitant]
     Active Substance: METOPROLOL
     Indication: Product used for unknown indication
     Dosage: UNK
     Route: 065

REACTIONS (3)
  - Agranulocytosis [Recovered/Resolved]
  - Nausea [Unknown]
  - Vomiting [Unknown]
